FAERS Safety Report 5976630-2 (Version None)
Quarter: 2008Q4

REPORT INFORMATION
  Report Type: 
  Country: None (occurrence: None)
  Receive Date: 20081201
  Receipt Date: 20081201
  Transmission Date: 20090506
  Serious: Yes (Life-Threatening, Disabling, Other)
  Sender: FDA-Public Use
  Company Number: None

PATIENT
  Age: 34 Year
  Sex: Male
  Weight: 72.5755 kg

DRUGS (1)
  1. NOVOLOG [Suspect]
     Indication: TYPE 1 DIABETES MELLITUS
     Dates: start: 20070315, end: 20081128

REACTIONS (3)
  - DEVICE MALFUNCTION [None]
  - MEDICAL DEVICE COMPLICATION [None]
  - MEDICATION ERROR [None]
